FAERS Safety Report 5156679-2 (Version None)
Quarter: 2006Q4

REPORT INFORMATION
  Report Type: 
  Country: None (occurrence: None)
  Receive Date: 20061115
  Receipt Date: 20061031
  Transmission Date: 20070319
  Serious: Yes (Hospitalization)
  Sender: FDA-Public Use
  Company Number: 2006SP005514

PATIENT
  Age: 64 Year
  Sex: Male
  Weight: 96 kg

DRUGS (2)
  1. PEG-INTRON [Suspect]
     Indication: HEPATITIS C
     Dosage: 150 MCG; QW
     Dates: start: 20060522, end: 20061031
  2. REBETOL [Suspect]
     Indication: HEPATITIS C
     Dosage: 1200 MG; QD
     Dates: start: 20060522, end: 20061031

REACTIONS (2)
  - HYPERTENSIVE CRISIS [None]
  - SYNCOPE [None]
